FAERS Safety Report 9338708 (Version 2)
Quarter: 2013Q3

REPORT INFORMATION
  Report Type: Report from Study
  Country: JP (occurrence: JP)
  Receive Date: 20130610
  Receipt Date: 20130902
  Transmission Date: 20140515
  Serious: Yes (Death)
  Sender: FDA-Public Use
  Company Number: JP-ROCHE-1232777

PATIENT
  Age: 83 Year
  Sex: Male

DRUGS (26)
  1. METHOXY POLYETHYLENE GLYCOL-EPOETIN BETA [Suspect]
     Indication: NEPHROGENIC ANAEMIA
     Route: 058
     Dates: start: 20120926, end: 20120926
  2. METHOXY POLYETHYLENE GLYCOL-EPOETIN BETA [Suspect]
     Indication: NEPHROGENIC ANAEMIA
     Route: 058
     Dates: start: 20121024, end: 20130118
  3. PRANLUKAST [Concomitant]
     Route: 048
     Dates: end: 20130118
  4. MUCODYNE [Concomitant]
     Route: 048
     Dates: end: 20130118
  5. NITOROL R [Concomitant]
     Route: 048
     Dates: end: 20130118
  6. ALESION [Concomitant]
     Route: 048
     Dates: end: 20130118
  7. HOKUNALIN [Concomitant]
     Dosage: WHOLE BODY (EXTERNAL APPLICATION)
     Route: 062
     Dates: end: 20130118
  8. SOLDEM 1 [Concomitant]
     Indication: PROPHYLAXIS
     Route: 041
     Dates: start: 20121020, end: 20121020
  9. SOLDEM 1 [Concomitant]
     Route: 041
     Dates: start: 20121119, end: 20121119
  10. SOLU-MEDROL [Concomitant]
     Route: 041
     Dates: start: 20121020, end: 20121020
  11. KREMEZIN [Concomitant]
     Indication: GLOMERULONEPHRITIS CHRONIC
     Route: 048
     Dates: start: 20121020, end: 20130118
  12. CELECOX [Concomitant]
     Route: 048
     Dates: start: 20121213, end: 20130118
  13. KIDMIN [Concomitant]
     Indication: GLOMERULONEPHRITIS CHRONIC
     Route: 041
     Dates: start: 20130105, end: 20130109
  14. GLUCOSE [Concomitant]
     Indication: PROPHYLAXIS
     Route: 041
     Dates: start: 20121119, end: 20121119
  15. ASCORBIC ACID [Concomitant]
     Indication: PROPHYLAXIS
     Dosage: REPORTED AS VC.
     Route: 041
     Dates: start: 20121119, end: 20121119
  16. ENSURE LIQUID [Concomitant]
     Indication: PROPHYLAXIS
     Route: 048
     Dates: start: 20121119, end: 20121202
  17. FLOMOX (JAPAN) [Concomitant]
     Indication: PROPHYLAXIS
     Route: 048
     Dates: start: 20121119, end: 20121123
  18. FLOMOX (JAPAN) [Concomitant]
     Route: 048
     Dates: start: 20130104, end: 20130108
  19. CALONAL [Concomitant]
     Indication: PROPHYLAXIS
     Dosage: AT THE THERMACOGENESIS
     Route: 048
     Dates: start: 20121119, end: 20130118
  20. CEFOPERAZONE, SULBACTAM [Concomitant]
     Indication: PROPHYLAXIS
     Dosage: REPORTED AS WYSTAL
     Route: 041
     Dates: start: 20121203, end: 20121203
  21. AMPICILLIN SODIUM/SULBACTAM SODIUM [Concomitant]
     Indication: PROPHYLAXIS
     Dosage: REPORTED AS YUCION-S
     Route: 041
     Dates: start: 20121203, end: 20121207
  22. ATARAX-P [Concomitant]
     Indication: PROPHYLAXIS
     Route: 042
     Dates: start: 20121203, end: 20121205
  23. SERENACE [Concomitant]
     Indication: PROPHYLAXIS
     Route: 042
     Dates: start: 20121204, end: 20121205
  24. SENNOSIDE [Concomitant]
     Indication: PROPHYLAXIS
     Route: 048
     Dates: start: 20121220, end: 20121220
  25. NIFEDIPINE [Concomitant]
     Dosage: REPORTED AS NIFELANTERN CR
     Route: 048
     Dates: end: 20130118
  26. THIAMINE DISULFIDE [Concomitant]
     Indication: PROPHYLAXIS
     Dosage: REPORTED AS VITALFA.
     Route: 041
     Dates: start: 20121119, end: 20121119

REACTIONS (7)
  - Renal failure [Fatal]
  - Decreased appetite [Recovering/Resolving]
  - C-reactive protein increased [Recovering/Resolving]
  - Pyrexia [Recovering/Resolving]
  - Restlessness [Not Recovered/Not Resolved]
  - Constipation [Not Recovered/Not Resolved]
  - Pyrexia [Recovering/Resolving]
